FAERS Safety Report 10606335 (Version 1)
Quarter: 2014Q4

REPORT INFORMATION
  Report Type: Spontaneous
  Country: FR (occurrence: FR)
  Receive Date: 20141125
  Receipt Date: 20141125
  Transmission Date: 20150529
  Serious: Yes (Hospitalization)
  Sender: FDA-Public Use
  Company Number: FR-JNJFOC-20141108891

PATIENT
  Age: 70 Year
  Sex: Female

DRUGS (11)
  1. ATORVASTATIN [Concomitant]
     Active Substance: ATORVASTATIN
     Route: 065
  2. RISPERDAL [Suspect]
     Active Substance: RISPERIDONE
     Indication: MANIA
     Route: 048
     Dates: start: 20140926
  3. NOCTAMIDE [Concomitant]
     Active Substance: LORMETAZEPAM
     Route: 065
  4. DOLIPRANE [Concomitant]
     Active Substance: ACETAMINOPHEN
     Route: 065
  5. NISIS [Concomitant]
     Active Substance: VALSARTAN
     Route: 065
  6. TERALITHE [Suspect]
     Active Substance: LITHIUM CARBONATE
     Indication: MANIA
     Route: 048
     Dates: start: 20140926
  7. SERESTA [Concomitant]
     Active Substance: OXAZEPAM
     Route: 065
  8. BISOPROLOL [Concomitant]
     Active Substance: BISOPROLOL
     Route: 065
  9. KARDEGIC [Concomitant]
     Active Substance: ASPIRIN LYSINE
     Route: 065
  10. LEVOTHYROX [Concomitant]
     Active Substance: LEVOTHYROXINE
     Route: 065
  11. TAREG [Concomitant]
     Active Substance: VALSARTAN
     Route: 065

REACTIONS (12)
  - Nausea [Unknown]
  - Confusional state [Recovered/Resolved]
  - Diarrhoea [Unknown]
  - Pyrexia [Unknown]
  - General physical health deterioration [Unknown]
  - Vomiting [Unknown]
  - White matter lesion [Unknown]
  - Psychomotor retardation [Unknown]
  - Hypertension [Unknown]
  - Overdose [Unknown]
  - Decreased appetite [Unknown]
  - Tremor [Unknown]

NARRATIVE: CASE EVENT DATE: 20140927
